FAERS Safety Report 6731858-9 (Version None)
Quarter: 2010Q2

REPORT INFORMATION
  Report Type: 
  Country: None (occurrence: None)
  Receive Date: 20100519
  Receipt Date: 20100510
  Transmission Date: 20101027
  Serious: Yes (Hospitalization, Other)
  Sender: FDA-Public Use
  Company Number: AU-NOVOPROD-307055

PATIENT
  Sex: Female

DRUGS (2)
  1. NOVORAPID FLEXPEN [Suspect]
     Indication: TYPE 2 DIABETES MELLITUS
     Dosage: 10 IU MORNING, 14 IU LUNCH AND 18 IU AT NIGHT
     Route: 058
     Dates: start: 20050101
  2. LANTUS [Concomitant]
     Dosage: 54 IU, QD

REACTIONS (2)
  - FALL [None]
  - URINARY TRACT INFECTION [None]
